FAERS Safety Report 21377082 (Version 1)
Quarter: 2022Q3

REPORT INFORMATION
  Report Type: Spontaneous
  Country: US (occurrence: None)
  Receive Date: 20220925
  Receipt Date: 20220925
  Transmission Date: 20221027
  Serious: Yes (Hospitalization)
  Sender: FDA-Public Use
  Company Number: None

PATIENT
  Age: 62 Year
  Sex: Female
  Weight: 84.6 kg

DRUGS (1)
  1. PIQRAY [Suspect]
     Active Substance: ALPELISIB
     Indication: Breast cancer metastatic
     Dosage: FREQUENCY : DAILY;?
     Route: 048
     Dates: start: 20220901, end: 20220911

REACTIONS (6)
  - Fatigue [None]
  - Rash [None]
  - Hyperglycaemia [None]
  - Adverse drug reaction [None]
  - Skin toxicity [None]
  - Asthenia [None]

NARRATIVE: CASE EVENT DATE: 20220911
